FAERS Safety Report 7126629-8 (Version None)
Quarter: 2010Q4

REPORT INFORMATION
  Report Type: 
  Country: None (occurrence: None)
  Receive Date: 20101129
  Receipt Date: 20101118
  Transmission Date: 20110411
  Serious: Yes (Hospitalization, Disabling)
  Sender: FDA-Public Use
  Company Number: CH-BAXTER-2010BH028673

PATIENT
  Age: 80 Year
  Sex: Male
  Weight: 60 kg

DRUGS (8)
  1. CYCLOPHOSPHAMIDE [Suspect]
     Indication: TESTIS CANCER
     Route: 041
     Dates: start: 20100614, end: 20100928
  2. MABTHERA [Suspect]
     Indication: TESTIS CANCER
     Route: 041
     Dates: start: 20100614, end: 20100928
  3. MABTHERA [Suspect]
     Route: 041
     Dates: start: 20100614, end: 20100928
  4. VINCRISTINE SULFATE [Suspect]
     Indication: TESTIS CANCER
     Route: 040
     Dates: start: 20100614, end: 20100928
  5. DOXORUBICIN HCL [Suspect]
     Indication: TESTIS CANCER
     Route: 041
     Dates: start: 20100614, end: 20100928
  6. PREDNISONE [Suspect]
     Indication: TESTIS CANCER
     Route: 048
     Dates: start: 20100614, end: 20100928
  7. ALLOPURINOL [Concomitant]
     Indication: TESTIS CANCER
     Route: 048
     Dates: start: 20100614, end: 20100928
  8. PANTOPRAZOLE SODIUM [Concomitant]
     Indication: TESTIS CANCER
     Route: 048

REACTIONS (3)
  - CONFUSIONAL STATE [None]
  - DYSPNOEA [None]
  - INTERSTITIAL LUNG DISEASE [None]
